FAERS Safety Report 19614116 (Version 2)
Quarter: 2021Q3

REPORT INFORMATION
  Report Type: Report from Study
  Country: US (occurrence: US)
  Receive Date: 20210727
  Receipt Date: 20210806
  Transmission Date: 20211014
  Serious: Yes (Other)
  Sender: FDA-Public Use
  Company Number: US-VERTEX PHARMACEUTICALS-2021-011080

PATIENT
  Age: 12 Year
  Sex: Female

DRUGS (2)
  1. PULMOZYME [Concomitant]
     Active Substance: DORNASE ALFA
  2. TRIKAFTA [Suspect]
     Active Substance: ELEXACAFTOR\IVACAFTOR\TEZACAFTOR
     Indication: CYSTIC FIBROSIS
     Dosage: 2 ORANGE TABS(50MG ELEXACAFTOR/ 25MG TEZACAFTOR/ 37.5MG IVACAFTOR)AM AND1 BLUE TAB(75MG IVACAFTOR)PM
     Route: 048
     Dates: start: 20210430

REACTIONS (1)
  - Sinus operation [Recovered/Resolved]

NARRATIVE: CASE EVENT DATE: 20210715
